FAERS Safety Report 10248670 (Version 3)
Quarter: 2014Q3

REPORT INFORMATION
  Report Type: Spontaneous
  Country: GB (occurrence: GB)
  Receive Date: 20140620
  Receipt Date: 20140718
  Transmission Date: 20150326
  Serious: Yes (Hospitalization)
  Sender: FDA-Public Use
  Company Number: GB-ABBVIE-14K-167-1249853-00

PATIENT
  Age: 39 Year
  Sex: Female

DRUGS (2)
  1. EPILIM [Suspect]
     Active Substance: VALPROATE SODIUM
     Route: 048
  2. EPILIM [Suspect]
     Active Substance: VALPROATE SODIUM
     Indication: EPILEPSY
     Route: 048

REACTIONS (8)
  - Malaise [Unknown]
  - Hemiplegia [Recovering/Resolving]
  - Burning sensation [Recovering/Resolving]
  - Convulsion [Unknown]
  - Rash [Recovering/Resolving]
  - Migraine [Unknown]
  - Neurological symptom [Recovering/Resolving]
  - Urticaria [Not Recovered/Not Resolved]
